FAERS Safety Report 7322764-X (Version None)
Quarter: 2011Q1

REPORT INFORMATION
  Report Type: 
  Country: None (occurrence: None)
  Receive Date: 20110216
  Receipt Date: 20110201
  Transmission Date: 20110831
  Serious: Yes (Hospitalization)
  Sender: FDA-Public Use
  Company Number: 021442

PATIENT
  Age: 1 Month
  Sex: Male
  Weight: 2 kg

DRUGS (4)
  1. LUMINAL /00023201/ [Concomitant]
  2. KEPPRA [Suspect]
     Indication: CONVULSION
     Dosage: (70 MG ORAL)
     Route: 048
     Dates: start: 20100402, end: 20100429
  3. CAFFEINE CITRATE [Concomitant]
  4. MOSAPRIDE [Concomitant]

REACTIONS (14)
  - RESPIRATORY FAILURE [None]
  - CHOLESTASIS [None]
  - RENAL TUBULAR DISORDER [None]
  - GAMMA-GLUTAMYLTRANSFERASE INCREASED [None]
  - PSYCHOMOTOR SKILLS IMPAIRED [None]
  - ANAEMIA [None]
  - HEPATIC FUNCTION ABNORMAL [None]
  - CONVULSION [None]
  - PNEUMONIA ASPIRATION [None]
  - KIDNEY ENLARGEMENT [None]
  - CEREBRAL ATROPHY [None]
  - BLOOD CREATININE INCREASED [None]
  - RENAL IMPAIRMENT [None]
  - CEREBRAL HAEMORRHAGE [None]
